FAERS Safety Report 4428192-9 (Version None)
Quarter: 2004Q3

REPORT INFORMATION
  Report Type: 
  Country: None (occurrence: None)
  Receive Date: 20040726
  Receipt Date: 20040422
  Transmission Date: 20050211
  Serious: No
  Sender: FDA-Public Use
  Company Number: USA040465729

PATIENT
  Age: 72 Year
  Sex: Male
  Weight: 53 kg

DRUGS (5)
  1. FORTEO [Suspect]
     Indication: OSTEOPOROSIS
     Dosage: 20 UG DAY
     Dates: start: 20040407
  2. VITAMIN NOS [Concomitant]
  3. VIOXX [Concomitant]
  4. ZOCOR (SIVASTATIN) [Concomitant]
  5. FISH OIL [Concomitant]

REACTIONS (1)
  - INJECTION SITE HAEMORRHAGE [None]
